FAERS Safety Report 7812911-5 (Version None)
Quarter: 2011Q4

REPORT INFORMATION
  Report Type: 
  Country: None (occurrence: None)
  Receive Date: 20111011
  Receipt Date: 20111003
  Transmission Date: 20120403
  Serious: Yes (Death)
  Sender: FDA-Public Use
  Company Number: B0754046A

PATIENT

DRUGS (3)
  1. PEGFILGRASTIM [Concomitant]
  2. STEM CELL TRANSPLANT [Concomitant]
  3. MELPHALAN HYDROCHLORIDE [Suspect]
     Indication: MULTIPLE MYELOMA

REACTIONS (1)
  - SEPTIC SHOCK [None]
